FAERS Safety Report 9346764 (Version 1)
Quarter: 2013Q2

REPORT INFORMATION
  Report Type: Spontaneous
  Country: US (occurrence: US)
  Receive Date: 20130613
  Receipt Date: 20130613
  Transmission Date: 20140414
  Serious: No
  Sender: FDA-Public Use
  Company Number: US-MYLANLABS-2013S1006792

PATIENT
  Age: 61 Year
  Sex: Male
  Weight: 88.91 kg

DRUGS (18)
  1. CLOPIDOGREL TABLETS USP [Suspect]
     Indication: CARDIAC DISORDER
     Route: 048
     Dates: start: 201302, end: 201302
  2. CLOPIDOGREL TABLETS USP [Suspect]
     Indication: CORONARY ARTERY DISEASE
     Route: 048
     Dates: start: 201302, end: 201302
  3. CLOPIDOGREL TABLETS USP [Suspect]
     Indication: ACUTE CORONARY SYNDROME
     Route: 048
     Dates: start: 201302, end: 201302
  4. ULTRAM /00599202/ [Concomitant]
     Indication: FIBROMYALGIA
     Route: 048
  5. SELMA [Concomitant]
     Indication: FIBROMYALGIA
     Route: 048
  6. LISINOPRIL [Concomitant]
     Indication: BLOOD PRESSURE INCREASED
     Route: 048
  7. ASA [Concomitant]
     Route: 048
  8. GABAPENTIN [Concomitant]
     Indication: FIBROMYALGIA
     Route: 048
  9. NIACIN [Concomitant]
     Route: 048
  10. FISH OIL [Concomitant]
     Route: 048
  11. INDERAL [Concomitant]
  12. ATIVAN [Concomitant]
  13. SOMA [Concomitant]
  14. MORPHINE [Concomitant]
  15. CYMBALTA [Concomitant]
  16. ZOCOR [Concomitant]
  17. ZOCOR [Concomitant]
  18. VERAPAMIL [Concomitant]

REACTIONS (10)
  - Dyspnoea [Recovered/Resolved]
  - Asthenia [Recovered/Resolved]
  - Dizziness [Recovered/Resolved]
  - Joint injury [Recovered/Resolved]
  - Hypoaesthesia [Recovered/Resolved]
  - Confusional state [Recovered/Resolved]
  - Balance disorder [Recovered/Resolved]
  - Cardiac flutter [Recovered/Resolved]
  - Somnolence [Recovered/Resolved]
  - Vision blurred [Recovered/Resolved]
